FAERS Safety Report 5642118-1 (Version None)
Quarter: 2008Q1

REPORT INFORMATION
  Report Type: 
  Country: None (occurrence: None)
  Receive Date: 20080227
  Receipt Date: 20080221
  Transmission Date: 20080703
  Serious: Yes (Hospitalization, Other)
  Sender: FDA-Public Use
  Company Number: US-MERCK-0711USA00536

PATIENT
  Age: 54 Year
  Sex: Female

DRUGS (1)
  1. FOSAMAX [Suspect]
     Indication: OSTEOPOROSIS
     Route: 048
     Dates: start: 20021114, end: 20051118

REACTIONS (6)
  - ANXIETY [None]
  - ARTHROPATHY [None]
  - HYPERTENSION [None]
  - INFLAMMATION [None]
  - OSTEONECROSIS [None]
  - PLEURAL EFFUSION [None]
